FAERS Safety Report 6863636-4 (Version None)
Quarter: 2010Q3

REPORT INFORMATION
  Report Type: 
  Country: None (occurrence: None)
  Receive Date: 20100721
  Receipt Date: 20080308
  Transmission Date: 20110219
  Serious: No
  Sender: FDA-Public Use
  Company Number: US-PFIZER INC-2008022758

PATIENT
  Age: 53 Year
  Sex: Male
  Weight: 81.818 kg

DRUGS (3)
  1. CHANTIX [Suspect]
     Indication: SMOKING CESSATION THERAPY
     Dates: start: 20080301
  2. TRAMADOL [Concomitant]
  3. VICODIN [Concomitant]

REACTIONS (1)
  - UNEVALUABLE EVENT [None]
